FAERS Safety Report 16817700 (Version 1)
Quarter: 2019Q4

REPORT INFORMATION
  Report Type: Spontaneous
  Country: US (occurrence: US)
  Receive Date: 20190917
  Receipt Date: 20190917
  Transmission Date: 20200122
  Serious: Yes (Hospitalization, Disabling)
  Sender: FDA-Public Use
  Company Number: None

PATIENT
  Age: 37 Year
  Sex: Female
  Weight: 57.15 kg

DRUGS (5)
  1. IRON SUPPLEMENTS [Concomitant]
     Active Substance: IRON
  2. METRONIDAZOLE. [Suspect]
     Active Substance: METRONIDAZOLE
     Indication: BACTERIAL VAGINOSIS
     Dosage: ?          QUANTITY:1 TABLET(S);?
     Route: 048
     Dates: start: 20181123, end: 20181127
  3. VITAMIN B COMPLEX [Concomitant]
     Active Substance: CYANOCOBALAMIN\DEXPANTHENOL\NIACINAMIDE\PYRIDOXINE HYDROCHLORIDE\RIBOFLAVIN 5^-PHOSPHATE SODIUM\THIAMINE HYDROCHLORIDE\VITAMIN B COMPLEX
  4. VITAMIN K2/D3 [Concomitant]
  5. OMEGA 3S [Concomitant]

REACTIONS (19)
  - Dysgeusia [None]
  - Depression [None]
  - Photosensitivity reaction [None]
  - Paraesthesia [None]
  - Coordination abnormal [None]
  - Feeling abnormal [None]
  - Chest pain [None]
  - Hyperacusis [None]
  - Decreased appetite [None]
  - Muscle twitching [None]
  - Abdominal pain [None]
  - Irritability [None]
  - Headache [None]
  - Altered state of consciousness [None]
  - Hyperaesthesia [None]
  - Pain [None]
  - Dizziness [None]
  - Weight decreased [None]
  - Disturbance in attention [None]

NARRATIVE: CASE EVENT DATE: 20181127
